FAERS Safety Report 18433163 (Version 3)
Quarter: 2022Q2

REPORT INFORMATION
  Report Type: Spontaneous
  Country: US (occurrence: US)
  Receive Date: 20201027
  Receipt Date: 20220502
  Transmission Date: 20220721
  Serious: No
  Sender: FDA-Public Use
  Company Number: US-PFIZER INC-2019552568

PATIENT
  Age: 53 Year
  Sex: Female
  Weight: 78.47 kg

DRUGS (6)
  1. PRISTIQ EXTENDED-RELEASE [Suspect]
     Active Substance: DESVENLAFAXINE SUCCINATE
     Indication: Generalised anxiety disorder
     Dosage: 50 MG, 1X/DAY (50MG 1 TABLET BY MOUTH ONCE A DAY)
     Route: 048
     Dates: start: 2005
  2. PRISTIQ EXTENDED-RELEASE [Suspect]
     Active Substance: DESVENLAFAXINE SUCCINATE
     Indication: Depression
  3. ARIPIPRAZOLE [Concomitant]
     Active Substance: ARIPIPRAZOLE
     Indication: Anxiety
     Dosage: 10 MG, 1X/DAY
  4. ARIPIPRAZOLE [Concomitant]
     Active Substance: ARIPIPRAZOLE
     Indication: Depression
  5. BUPROPION HYDROCHLORIDE XL [Concomitant]
     Active Substance: BUPROPION HYDROCHLORIDE
     Indication: Anxiety
     Dosage: 150 MG, 1X/DAY
  6. BUPROPION HYDROCHLORIDE XL [Concomitant]
     Active Substance: BUPROPION HYDROCHLORIDE
     Indication: Depression

REACTIONS (4)
  - Feeling abnormal [Not Recovered/Not Resolved]
  - Withdrawal syndrome [Unknown]
  - Feeling abnormal [Unknown]
  - Stress [Unknown]

NARRATIVE: CASE EVENT DATE: 20200101
